FAERS Safety Report 14468903 (Version 1)
Quarter: 2018Q1

REPORT INFORMATION
  Report Type: Report from Study
  Country: US (occurrence: US)
  Receive Date: 20180131
  Receipt Date: 20180131
  Transmission Date: 20180509
  Serious: Yes (Disabling)
  Sender: FDA-Public Use
  Company Number: US-ROCHE-2062116

PATIENT
  Age: 63 Year
  Sex: Male
  Weight: 95.34 kg

DRUGS (2)
  1. LUCENTIS [Suspect]
     Active Substance: RANIBIZUMAB
     Indication: EYE SWELLING
     Dosage: ONCE IN EVERY 4 TO 6 TO 8 WEEKS.
     Route: 050
     Dates: start: 201610
  2. LUCENTIS [Suspect]
     Active Substance: RANIBIZUMAB
     Route: 050

REACTIONS (10)
  - Loss of control of legs [Not Recovered/Not Resolved]
  - Visual impairment [Unknown]
  - Vision blurred [Not Recovered/Not Resolved]
  - Glare [Not Recovered/Not Resolved]
  - Photophobia [Not Recovered/Not Resolved]
  - Multiple use of single-use product [Unknown]
  - Drug administration error [Unknown]
  - Dry eye [Recovered/Resolved]
  - Eye pruritus [Recovered/Resolved]
  - Night blindness [Not Recovered/Not Resolved]

NARRATIVE: CASE EVENT DATE: 201610
